FAERS Safety Report 6345477-X (Version None)
Quarter: 2009Q3

REPORT INFORMATION
  Report Type: 
  Country: None (occurrence: None)
  Receive Date: 20090909
  Receipt Date: 20090827
  Transmission Date: 20100115
  Serious: Yes (Hospitalization)
  Sender: FDA-Public Use
  Company Number: FR-CELGENEUS-056-50794-09070821

PATIENT
  Sex: Male

DRUGS (10)
  1. VIDAZA [Suspect]
     Route: 058
     Dates: start: 20090119
  2. VIDAZA [Suspect]
     Route: 058
     Dates: start: 20090216
  3. VIDAZA [Suspect]
     Route: 058
     Dates: start: 20090316
  4. VIDAZA [Suspect]
     Route: 058
     Dates: start: 20090420
  5. BASDENE [Concomitant]
     Indication: DRUG USE FOR UNKNOWN INDICATION
     Route: 065
  6. ATACAND [Concomitant]
     Indication: DRUG USE FOR UNKNOWN INDICATION
     Route: 065
  7. HEMIGOXINE [Concomitant]
     Indication: DRUG USE FOR UNKNOWN INDICATION
     Route: 065
  8. ALLOPURINOL [Concomitant]
     Indication: DRUG USE FOR UNKNOWN INDICATION
     Route: 065
  9. NOCTRAN [Concomitant]
     Indication: DRUG USE FOR UNKNOWN INDICATION
     Route: 065
  10. ALDACTONE [Concomitant]
     Indication: DRUG USE FOR UNKNOWN INDICATION
     Route: 065

REACTIONS (1)
  - HISTIOCYTOSIS HAEMATOPHAGIC [None]
